FAERS Safety Report 14706590 (Version 1)
Quarter: 2018Q2

REPORT INFORMATION
  Report Type: Spontaneous
  Country: TR (occurrence: TR)
  Receive Date: 20180402
  Receipt Date: 20180402
  Transmission Date: 20180711
  Serious: No
  Sender: FDA-Public Use
  Company Number: TR-APTEVO BIOTHERAPEUTICS LLC-17HB00031SP

PATIENT
  Sex: Male

DRUGS (1)
  1. HEPAGAM B [Suspect]
     Active Substance: HUMAN HEPATITIS B VIRUS IMMUNE GLOBULIN
     Dosage: UNK
     Dates: start: 20170707, end: 20170707

REACTIONS (1)
  - Hypersensitivity [Recovered/Resolved]

NARRATIVE: CASE EVENT DATE: 20170705
